FAERS Safety Report 4818589-7 (Version None)
Quarter: 2005Q4

REPORT INFORMATION
  Report Type: 
  Country: None (occurrence: None)
  Receive Date: 20051027
  Receipt Date: 20051020
  Transmission Date: 20060501
  Serious: Yes (Other)
  Sender: FDA-Public Use
  Company Number: 200511719BBE

PATIENT

DRUGS (1)
  1. GAMUNEX [Suspect]
     Dosage: INTRAVENOUS
     Route: 042

REACTIONS (4)
  - BONE PAIN [None]
  - HYPERKERATOSIS [None]
  - OSTEITIS [None]
  - SKIN ULCER [None]
